FAERS Safety Report 12441759 (Version 1)
Quarter: 2016Q2

REPORT INFORMATION
  Report Type: Spontaneous
  Country: US (occurrence: US)
  Receive Date: 20160607
  Receipt Date: 20160607
  Transmission Date: 20160815
  Serious: Yes (Hospitalization, Other)
  Sender: FDA-Public Use
  Company Number: US-DSJP-DSU-2015-133862

PATIENT
  Sex: Male
  Weight: 152.83 kg

DRUGS (3)
  1. BENICAR [Suspect]
     Active Substance: OLMESARTAN MEDOXOMIL
     Indication: CARDIAC DISORDER
     Dosage: 40 MG, QD
     Route: 048
     Dates: start: 2010, end: 2013
  2. BENICAR HCT [Suspect]
     Active Substance: HYDROCHLOROTHIAZIDE\OLMESARTAN MEDOXOMIL
     Indication: CARDIAC DISORDER
     Dosage: 40/25 MG ,QD
     Route: 048
     Dates: start: 2010, end: 2013
  3. BENICAR HCT [Suspect]
     Active Substance: HYDROCHLOROTHIAZIDE\OLMESARTAN MEDOXOMIL
     Dosage: 40/12.5 MG,QD
     Route: 048

REACTIONS (4)
  - Gastrooesophageal reflux disease [Unknown]
  - Off label use [Unknown]
  - Malabsorption [Not Recovered/Not Resolved]
  - Acute kidney injury [Recovering/Resolving]

NARRATIVE: CASE EVENT DATE: 2010
